FAERS Safety Report 10288944 (Version 1)
Quarter: 2014Q3

REPORT INFORMATION
  Report Type: Spontaneous
  Country: US (occurrence: US)
  Receive Date: 20140709
  Receipt Date: 20140709
  Transmission Date: 20150326
  Serious: Yes (Other)
  Sender: FDA-Public Use
  Company Number: US-GILEAD-2014-0107755

PATIENT
  Sex: Male

DRUGS (1)
  1. LETAIRIS [Suspect]
     Active Substance: AMBRISENTAN
     Indication: PULMONARY ARTERIAL HYPERTENSION
     Dosage: 5 MG, QD
     Route: 065
     Dates: start: 20120213

REACTIONS (5)
  - Lung carcinoma cell type unspecified stage IV [Unknown]
  - Fatigue [Unknown]
  - Dyspnoea [Unknown]
  - Stress [Unknown]
  - Pneumonectomy [Unknown]
